FAERS Safety Report 9176930 (Version 1)
Quarter: 2013Q1

REPORT INFORMATION
  Report Type: Spontaneous
  Country: FR (occurrence: FR)
  Receive Date: 20130321
  Receipt Date: 20130321
  Transmission Date: 20140127
  Serious: Yes (Death)
  Sender: FDA-Public Use
  Company Number: FR-JNJFOC-20130308660

PATIENT
  Sex: Female

DRUGS (4)
  1. DOXORUBICIN [Suspect]
     Indication: UTERINE LEIOMYOSARCOMA
     Dosage: ON DAY 1
     Route: 042
  2. IFOSFAMIDE AND MESNA [Suspect]
     Indication: LEIOMYOSARCOMA METASTATIC
     Dosage: IFOSFAMIDE 3 G/M2/D ON DAY 1 AND DAY 2
     Route: 065
  3. CISPLATIN [Suspect]
     Indication: LEIOMYOSARCOMA METASTATIC
     Dosage: ON DAY 3
     Route: 065
  4. GRANULOCYTE COLONY STIMULATING FACTOR [Suspect]
     Indication: UTERINE LEIOMYOSARCOMA
     Route: 065

REACTIONS (2)
  - Septic shock [Fatal]
  - Off label use [Unknown]
